FAERS Safety Report 5854224-7 (Version None)
Quarter: 2008Q3

REPORT INFORMATION
  Report Type: 
  Country: None (occurrence: None)
  Receive Date: 20080822
  Receipt Date: 20080814
  Transmission Date: 20090109
  Serious: Yes (Other)
  Sender: FDA-Public Use
  Company Number: PHHY2008CA18085

PATIENT
  Sex: Female

DRUGS (3)
  1. VOLTAREN [Suspect]
     Dosage: 0.1 %, QID
     Route: 047
     Dates: start: 20080813, end: 20080814
  2. COSOPT [Concomitant]
     Indication: GLAUCOMA
     Dosage: UNK, BID
     Dates: start: 20030224
  3. ZALATAN [Concomitant]
     Indication: GLAUCOMA
     Dosage: QHS
     Dates: start: 20010906

REACTIONS (3)
  - BLISTER [None]
  - HYPERSENSITIVITY [None]
  - RASH [None]
